FAERS Safety Report 8081007-2 (Version None)
Quarter: 2012Q1

REPORT INFORMATION
  Report Type: 
  Country: None (occurrence: None)
  Receive Date: 20120130
  Receipt Date: 20120124
  Transmission Date: 20120608
  Serious: Yes (Other)
  Sender: FDA-Public Use
  Company Number: PHHY2011JP42968

PATIENT
  Age: 25 Year
  Sex: Male

DRUGS (2)
  1. VOLTAREN [Suspect]
     Dosage: 50 MG, DAILY
     Route: 054
     Dates: start: 20110516, end: 20110516
  2. ADRENAL HORMONE [Concomitant]

REACTIONS (4)
  - BODY TEMPERATURE DECREASED [None]
  - CYANOSIS [None]
  - SHOCK [None]
  - BLOOD PRESSURE DECREASED [None]
